FAERS Safety Report 5048826-8 (Version None)
Quarter: 2006Q2

REPORT INFORMATION
  Report Type: 
  Country: None (occurrence: None)
  Receive Date: 20060601
  Receipt Date: 20060303
  Transmission Date: 20061013
  Serious: No
  Sender: FDA-Public Use
  Company Number: US200603001360

PATIENT
  Age: 80 Year
  Sex: Male

DRUGS (1)
  1. CYMBALTA [Suspect]
     Indication: DEPRESSION
     Dosage: 60 MG, OTHER, ORAL
     Route: 048

REACTIONS (3)
  - INSOMNIA [None]
  - SOMNOLENCE [None]
  - TREATMENT NONCOMPLIANCE [None]
